FAERS Safety Report 19573349 (Version 1)
Quarter: 2021Q3

REPORT INFORMATION
  Report Type: Spontaneous
  Country: JP (occurrence: JP)
  Receive Date: 20210717
  Receipt Date: 20210717
  Transmission Date: 20211014
  Serious: Yes (Other)
  Sender: FDA-Public Use
  Company Number: JP-UNITED THERAPEUTICS-UNT-2016-014954

PATIENT
  Age: 39 Year
  Sex: Male
  Weight: 66 kg

DRUGS (20)
  1. FEXOFENADINE HYDROCHLORIDE. [Concomitant]
     Active Substance: FEXOFENADINE HYDROCHLORIDE
     Indication: RHINITIS
     Dosage: UNK
     Route: 048
     Dates: end: 20171108
  2. REMODULIN [Suspect]
     Active Substance: TREPROSTINIL
     Dosage: 0.056 ?G/KG, CONTINUING
     Route: 058
  3. ALLEGRA [Concomitant]
     Active Substance: FEXOFENADINE HYDROCHLORIDE
     Indication: PROPHYLAXIS
     Dosage: UNK
     Route: 048
     Dates: start: 20180219
  4. SYMPROIC [Concomitant]
     Active Substance: NALDEMEDINE
     Indication: PROPHYLAXIS
     Dosage: UNK
     Route: 048
  5. OPSUMIT [Concomitant]
     Active Substance: MACITENTAN
     Indication: PULMONARY ARTERIAL HYPERTENSION
     Dosage: UNK
     Route: 048
     Dates: start: 201512
  6. REBAMIPIDE [Concomitant]
     Active Substance: REBAMIPIDE
     Indication: PROPHYLAXIS
     Dosage: UNK
     Route: 048
     Dates: start: 20160921
  7. FEBURIC [Concomitant]
     Active Substance: FEBUXOSTAT
     Indication: PROPHYLAXIS
     Dosage: UNK
     Route: 048
     Dates: start: 20191216
  8. UPTRAVI [Concomitant]
     Active Substance: SELEXIPAG
     Indication: PULMONARY ARTERIAL HYPERTENSION
     Dosage: UNK
     Route: 048
     Dates: start: 20210517
  9. REMODULIN [Suspect]
     Active Substance: TREPROSTINIL
     Indication: PULMONARY ARTERIAL HYPERTENSION
     Dosage: 0.001 ?G/KG, CONTINUING
     Route: 058
     Dates: start: 20160906
  10. REMODULIN [Suspect]
     Active Substance: TREPROSTINIL
     Dosage: 0.088 ?G/KG, CONTINUING
     Route: 058
  11. CARELOAD [Concomitant]
     Active Substance: BERAPROST SODIUM
     Indication: PULMONARY ARTERIAL HYPERTENSION
     Dosage: UNK
     Route: 048
     Dates: start: 201512, end: 2016
  12. RESTAMIN CORTISONE [Concomitant]
     Active Substance: DIPHENHYDRAMINE HYDROCHLORIDE\HYDROCORTISONE ACETATE\NEOMYCIN SULFATE
     Indication: PROPHYLAXIS
     Dosage: UNK
     Route: 061
  13. DOMPERIDONE [Concomitant]
     Active Substance: DOMPERIDONE
     Indication: PROPHYLAXIS
     Dosage: UNK
     Route: 048
     Dates: start: 20190624, end: 2020
  14. REVATIO [Concomitant]
     Active Substance: SILDENAFIL CITRATE
     Indication: PULMONARY ARTERIAL HYPERTENSION
     Dosage: UNK
     Route: 048
     Dates: start: 20171108
  15. HIRUDOID [Concomitant]
     Active Substance: GLYCOSAMINOGLYCANS
     Indication: PROPHYLAXIS
     Dosage: UNK
     Route: 061
     Dates: start: 20191216
  16. KINDAVATE [Concomitant]
     Active Substance: CLOBETASONE BUTYRATE
     Indication: PROPHYLAXIS
     Dosage: UNK
     Route: 061
     Dates: start: 20200727
  17. REMODULIN [Suspect]
     Active Substance: TREPROSTINIL
     Dosage: 0.0015 ?G/KG, CONTINUING
     Route: 058
     Dates: start: 20160915
  18. REMODULIN [Suspect]
     Active Substance: TREPROSTINIL
     Dosage: 0.0915 ?G/KG, CONTINUING
     Route: 058
     Dates: start: 2021
  19. LYRICA [Concomitant]
     Active Substance: PREGABALIN
     Indication: PRODUCT USED FOR UNKNOWN INDICATION
     Dosage: UNK
     Route: 048
     Dates: end: 20180226
  20. ADEMPAS [Concomitant]
     Active Substance: RIOCIGUAT
     Indication: PULMONARY ARTERIAL HYPERTENSION
     Dosage: UNK
     Route: 048
     Dates: start: 201512, end: 20171107

REACTIONS (9)
  - Diarrhoea [Not Recovered/Not Resolved]
  - Pain in extremity [Recovering/Resolving]
  - Oedema peripheral [Recovering/Resolving]
  - Injection site pain [Recovering/Resolving]
  - Nausea [Unknown]
  - Nausea [Not Recovered/Not Resolved]
  - Sleep apnoea syndrome [Not Recovered/Not Resolved]
  - Injection site infection [Recovering/Resolving]
  - Headache [Unknown]

NARRATIVE: CASE EVENT DATE: 20160906
